FAERS Safety Report 11361445 (Version 3)
Quarter: 2015Q4

REPORT INFORMATION
  Report Type: Report from Study
  Country: CA (occurrence: CA)
  Receive Date: 20150810
  Receipt Date: 20151007
  Transmission Date: 20160304
  Serious: Yes (Hospitalization)
  Sender: FDA-Public Use
  Company Number: CA-UCBSA-2015024806

PATIENT
  Age: 48 Year
  Sex: Male

DRUGS (3)
  1. CERTOLIZUMAB PEGOL RA [Suspect]
     Active Substance: CERTOLIZUMAB PEGOL
     Dosage: 200 MG, EV 2 WEEKS(QOW)
     Route: 058
     Dates: start: 20121130, end: 201507
  2. CERTOLIZUMAB PEGOL RA [Suspect]
     Active Substance: CERTOLIZUMAB PEGOL
     Indication: RHEUMATOID ARTHRITIS
     Dosage: 400 MG, EV 2 WEEKS(QOW)
     Route: 058
     Dates: start: 20121019, end: 20121116
  3. PANTOLOC [Concomitant]
     Active Substance: PANTOPRAZOLE SODIUM
     Indication: PRODUCT USED FOR UNKNOWN INDICATION
     Dosage: UNK
     Dates: start: 201507

REACTIONS (5)
  - Gastritis [Unknown]
  - Cholelithiasis [Unknown]
  - Ulcer [Unknown]
  - Arthritis [Unknown]
  - Stress [Unknown]

NARRATIVE: CASE EVENT DATE: 201507
